FAERS Safety Report 8735108 (Version 2)
Quarter: 2013Q4

REPORT INFORMATION
  Report Type: Spontaneous
  Country: US (occurrence: US)
  Receive Date: 20120821
  Receipt Date: 20131101
  Transmission Date: 20140711
  Serious: No
  Sender: FDA-Public Use
  Company Number: US-009507513-1208USA001316

PATIENT
  Sex: Female

DRUGS (2)
  1. MIRALAX [Suspect]
     Indication: PRODUCT USED FOR UNKNOWN INDICATION
     Dosage: UNK, UNKNOWN
     Route: 048
  2. MIRALAX [Suspect]
     Dosage: 1 DF, ONCE
     Route: 048
     Dates: start: 20120626, end: 20120626

REACTIONS (3)
  - Oesophageal irritation [Unknown]
  - Dyspepsia [Unknown]
  - Incorrect drug administration duration [Unknown]
